FAERS Safety Report 9536187 (Version 1)
Quarter: 2013Q2

REPORT INFORMATION
  Report Type: Spontaneous
  Country: US (occurrence: None)
  Receive Date: 20130507
  Receipt Date: 20130507
  Transmission Date: 20140414
  Serious: No
  Sender: FDA-Public Use
  Company Number: PHEH2012US025406

PATIENT
  Age: 57 Year
  Sex: Female
  Weight: 59 kg

DRUGS (3)
  1. AFINITOR (RAD) TABLET, 10MG [Suspect]
     Route: 048
     Dates: start: 20121130
  2. VIT D (ERGOCALCIFEROL) [Concomitant]
  3. GUMMI KING CALCIUM PLUS VITMAIN D (CALCIUM PHOSPHATE, ERGOCALCIFEROL) [Concomitant]

REACTIONS (4)
  - Sinusitis [None]
  - Glossodynia [None]
  - Anaemia [None]
  - Stomatitis [None]
